FAERS Safety Report 23497330 (Version 1)
Quarter: 2024Q1

REPORT INFORMATION
  Report Type: Spontaneous
  Country: US (occurrence: None)
  Receive Date: 20240207
  Receipt Date: 20240207
  Transmission Date: 20240410
  Serious: No
  Sender: FDA-Public Use
  Company Number: None

PATIENT
  Age: 50 Year
  Sex: Female
  Weight: 72.9 kg

DRUGS (2)
  1. MOUNJARO [Suspect]
     Active Substance: TIRZEPATIDE
  2. METFORMIN [Suspect]
     Active Substance: METFORMIN HYDROCHLORIDE

REACTIONS (7)
  - Disease recurrence [None]
  - Therapy cessation [None]
  - Heavy menstrual bleeding [None]
  - Muscle spasms [None]
  - Inflammation [None]
  - Insulin resistance [None]
  - Insurance issue [None]

NARRATIVE: CASE EVENT DATE: 20240115
